FAERS Safety Report 7024599-4 (Version None)
Quarter: 2010Q4

REPORT INFORMATION
  Report Type: 
  Country: None (occurrence: None)
  Receive Date: 20101001
  Receipt Date: 20100923
  Transmission Date: 20110411
  Serious: Yes (Other)
  Sender: FDA-Public Use
  Company Number: BR-PFIZER INC-2010014198

PATIENT
  Age: 26 Year
  Sex: Female
  Weight: 70 kg

DRUGS (3)
  1. FARLUTAL [Suspect]
     Indication: OFF LABEL USE
     Dosage: 10 MG, 2X/DAY
     Route: 048
     Dates: start: 20081201, end: 20090101
  2. FARLUTAL [Suspect]
     Indication: HORMONE REPLACEMENT THERAPY
  3. CLOMIFENE CITRATE [Concomitant]
     Indication: OVULATION INDUCTION
     Dosage: UNK

REACTIONS (6)
  - ABORTION SPONTANEOUS [None]
  - BLOOD PROLACTIN INCREASED [None]
  - INFERTILITY FEMALE [None]
  - MENSTRUATION DELAYED [None]
  - OVARIAN CYST [None]
  - WEIGHT INCREASED [None]
